FAERS Safety Report 7277952-8 (Version None)
Quarter: 2011Q1

REPORT INFORMATION
  Report Type: 
  Country: None (occurrence: None)
  Receive Date: 20110207
  Receipt Date: 20110131
  Transmission Date: 20110831
  Serious: Yes (Hospitalization, Other)
  Sender: FDA-Public Use
  Company Number: IE-B.I. PHARMACEUTICALS,INC./RIDGEFIELD-2010-UK-01180UK

PATIENT
  Sex: Female

DRUGS (3)
  1. PRADAXA [Suspect]
     Indication: HIP ARTHROPLASTY
     Dosage: 150 MG
     Route: 048
     Dates: start: 20100921, end: 20101019
  2. TRITACE [Concomitant]
     Dosage: 10 MG
     Route: 048
  3. LIPITOR [Concomitant]
     Dosage: 10 MG
     Route: 048

REACTIONS (1)
  - DEEP VEIN THROMBOSIS [None]
